FAERS Safety Report 5526303-5 (Version None)
Quarter: 2007Q4

REPORT INFORMATION
  Report Type: 
  Country: None (occurrence: None)
  Receive Date: 20071127
  Receipt Date: 20071121
  Transmission Date: 20080405
  Serious: Yes (Other)
  Sender: FDA-Public Use
  Company Number: PHFR2007GB03434

PATIENT
  Sex: Male

DRUGS (2)
  1. DESFERAL [Suspect]
     Indication: IRON OVERLOAD
     Route: 065
  2. EXJADE [Suspect]
     Indication: IRON OVERLOAD
     Dosage: 1 G/DAY
     Route: 048

REACTIONS (1)
  - OTOTOXICITY [None]
